FAERS Safety Report 13421827 (Version 1)
Quarter: 2017Q2

REPORT INFORMATION
  Report Type: Spontaneous
  Country: IT (occurrence: IT)
  Receive Date: 20170410
  Receipt Date: 20170410
  Transmission Date: 20170830
  Serious: Yes (Other)
  Sender: FDA-Public Use
  Company Number: IT-STRIDES ARCOLAB LIMITED-2017SP006062

PATIENT

DRUGS (3)
  1. MEROPENEM. [Concomitant]
     Active Substance: MEROPENEM
     Indication: PANCREATITIS ACUTE
     Dosage: UNK, UNKNOWN
     Route: 042
  2. VANCOMYCIN [Suspect]
     Active Substance: VANCOMYCIN
     Indication: CLOSTRIDIUM DIFFICILE INFECTION
     Dosage: UNK, UNKNOWN
     Route: 048
  3. METRONIDAZOLE. [Concomitant]
     Active Substance: METRONIDAZOLE
     Indication: CLOSTRIDIUM DIFFICILE INFECTION
     Dosage: UNK, UNKNOWN
     Route: 042

REACTIONS (1)
  - Systemic candida [Unknown]
